FAERS Safety Report 17273577 (Version 1)
Quarter: 2020Q1

REPORT INFORMATION
  Report Type: Spontaneous
  Country: US (occurrence: US)
  Receive Date: 20200115
  Receipt Date: 20200115
  Transmission Date: 20200409
  Serious: No
  Sender: FDA-Public Use
  Company Number: None

PATIENT
  Age: 37 Year
  Sex: Male
  Weight: 71.55 kg

DRUGS (1)
  1. FAMCICLOVIR 500 MG TEVA [Suspect]
     Active Substance: FAMCICLOVIR
     Indication: GENITAL HERPES
     Dosage: ?          QUANTITY:1 TABLET(S);?
     Route: 048

REACTIONS (3)
  - Product quality issue [None]
  - Skin discolouration [None]
  - Product substitution issue [None]

NARRATIVE: CASE EVENT DATE: 20191201
